FAERS Safety Report 8135793-3 (Version None)
Quarter: 2012Q1

REPORT INFORMATION
  Report Type: 
  Country: None (occurrence: None)
  Receive Date: 20120214
  Receipt Date: 20120202
  Transmission Date: 20120608
  Serious: Yes (Death, Hospitalization, Other)
  Sender: FDA-Public Use
  Company Number: US-UCBSA-050372

PATIENT
  Age: 83 Year
  Sex: Female
  Weight: 58.96 kg

DRUGS (14)
  1. CARVEDILOL [Concomitant]
     Indication: ATRIAL FIBRILLATION
     Dosage: SOME OF THE PATIENT'S NORMAL MEDICINES ARE ON HOLD AT THE MOMENT
     Route: 048
     Dates: start: 20101201
  2. ASPIRIN [Concomitant]
     Indication: ATRIAL FIBRILLATION
     Dosage: SOME OF THE PATIENT'S NORMAL MEDICINES ARE ON HOLD AT THE MOMENT
     Route: 048
     Dates: start: 20111201
  3. VIMPAT [Suspect]
     Dosage: DURATION: 6 - 8 MONTHS
     Route: 048
  4. SPIRONOLACTONE [Concomitant]
     Indication: FLUID RETENTION
     Dosage: 25 MG ONCE EVERY OTHER DAY; SOME OF THE PATIENT'S NORMAL MEDICINES ARE ON HOLD AT THE MOMENT
     Route: 048
     Dates: start: 20101201
  5. VIMPAT [Suspect]
     Route: 048
  6. LISINOPRIL [Concomitant]
     Dosage: SOME OF THE PATIENT'S NORMAL MEDICINES ARE ON HOLD AT THE MOMENT
     Route: 048
     Dates: start: 20101201
  7. COUMADIN [Concomitant]
     Indication: ATRIAL FIBRILLATION
     Dosage: DOSE: 1 TABLET; FREQUENCY: D/CD
     Dates: end: 20111201
  8. VIMPAT [Suspect]
     Indication: CONVULSION
     Route: 042
     Dates: start: 20120106, end: 20120113
  9. LEVOTHYROXINE SODIUM [Concomitant]
     Indication: THYROID DISORDER
     Dosage: SOME OF THE PATIENT'S NORMAL MEDICINES ARE ON HOLD AT THE MOMENT
     Route: 048
     Dates: start: 20070101
  10. VIMPAT [Suspect]
     Indication: CONVULSION
     Route: 048
     Dates: end: 20120105
  11. ARICEPT [Concomitant]
     Indication: DEMENTIA
     Dosage: SOME OF THE PATIENT'S NORMAL MEDICINES ARE ON HOLD AT THE MOMENT
     Route: 048
     Dates: start: 20090101
  12. DEPAKOTE [Concomitant]
     Indication: CONVULSION
     Dosage: 500 MG ONE AT BED TIME; SOME OF THE PATIENT'S NORMAL MEDICINES ARE ON HOLD AT THE MOMENT
     Route: 048
     Dates: start: 20100401
  13. KEPPRA [Suspect]
     Dates: end: 20111201
  14. PRAVASTATIN [Concomitant]
     Indication: BLOOD CHOLESTEROL INCREASED
     Dosage: SOME OF THE PATIENT'S NORMAL MEDICINES ARE ON HOLD AT THE MOMENT
     Route: 048
     Dates: start: 20101201

REACTIONS (9)
  - PNEUMONIA [None]
  - FALL [None]
  - DRUG HYPERSENSITIVITY [None]
  - CONVULSION [None]
  - LETHARGY [None]
  - GAIT DISTURBANCE [None]
  - CONFUSIONAL STATE [None]
  - ANTICONVULSANT DRUG LEVEL INCREASED [None]
  - RIB FRACTURE [None]
